FAERS Safety Report 21687131 (Version 1)
Quarter: 2022Q4

REPORT INFORMATION
  Report Type: Spontaneous
  Country: US (occurrence: US)
  Receive Date: 20221206
  Receipt Date: 20221206
  Transmission Date: 20230113
  Serious: No
  Sender: FDA-Public Use
  Company Number: US-COHERUS BIOSCIENCES INC-2022-COH-US000031

PATIENT

DRUGS (2)
  1. UDENYCA [Suspect]
     Active Substance: PEGFILGRASTIM-CBQV
     Indication: Non-small cell lung cancer stage IV
     Dosage: UNK
     Route: 058
     Dates: start: 20220601
  2. UDENYCA [Suspect]
     Active Substance: PEGFILGRASTIM-CBQV
     Dosage: UNK
     Route: 058
     Dates: start: 20220803

REACTIONS (1)
  - Bone marrow infiltration [Unknown]

NARRATIVE: CASE EVENT DATE: 20220815
